FAERS Safety Report 24641571 (Version 1)
Quarter: 2024Q4

REPORT INFORMATION
  Report Type: Spontaneous
  Country: FR (occurrence: FR)
  Receive Date: 20241120
  Receipt Date: 20241120
  Transmission Date: 20250115
  Serious: Yes (Death)
  Sender: ROCHE
  Company Number: FR-ROCHE-10000135975

PATIENT
  Age: 82 Year
  Sex: Male

DRUGS (12)
  1. RITUXIMAB [Suspect]
     Active Substance: RITUXIMAB
     Indication: Mantle cell lymphoma
     Dosage: FOR FIRST COURSE
     Route: 042
  2. RITUXIMAB [Suspect]
     Active Substance: RITUXIMAB
     Dosage: FOR ALL SUBSEQUENT COURSES
     Route: 042
  3. METHOTREXATE [Suspect]
     Active Substance: METHOTREXATE
     Indication: Mantle cell lymphoma
     Dosage: 2 G/M2
     Route: 029
  4. BENDAMUSTINE [Suspect]
     Active Substance: BENDAMUSTINE
     Indication: Mantle cell lymphoma
     Dosage: ON DAYS 1 AND 2 PER CYCLE, EVERY 28 DAYS FOR UP TO SIX CYCLES
     Route: 065
  5. PREDNISONE [Concomitant]
     Active Substance: PREDNISONE
  6. ETOPOSIDE [Concomitant]
     Active Substance: ETOPOSIDE
  7. PROCARBAZINE [Concomitant]
     Active Substance: PROCARBAZINE
  8. CYCLOPHOSPHAMIDE [Concomitant]
     Active Substance: CYCLOPHOSPHAMIDE
  9. IBRUTINIB [Concomitant]
     Active Substance: IBRUTINIB
     Route: 048
  10. CYTARABINE [Concomitant]
     Active Substance: CYTARABINE
  11. DEXAMETHASONE [Concomitant]
     Active Substance: DEXAMETHASONE
     Dosage: ON DAYS 1-4
  12. CYTARABINE [Concomitant]
     Active Substance: CYTARABINE
     Dosage: ON DAYS 2-3, IN 21 -DAY CYCLES

REACTIONS (1)
  - Disease progression [Fatal]
